FAERS Safety Report 8697157 (Version 3)
Quarter: 2013Q1

REPORT INFORMATION
  Report Type: Spontaneous
  Country: US (occurrence: US)
  Receive Date: 20120801
  Receipt Date: 20130320
  Transmission Date: 20140127
  Serious: Yes (Death, Other)
  Sender: FDA-Public Use
  Company Number: US-ASTRAZENECA-2008UW24954

PATIENT
  Age: 48 Year
  Sex: Female

DRUGS (4)
  1. ARIMIDEX [Suspect]
     Indication: BREAST CANCER
     Route: 048
     Dates: start: 200811
  2. NEXIUM [Suspect]
     Route: 048
  3. TAMOXIFEN [Suspect]
     Route: 048
     Dates: start: 200804
  4. LOVENOX [Concomitant]

REACTIONS (10)
  - Death [Fatal]
  - Breast cancer female [Unknown]
  - Gastric ulcer [Unknown]
  - Stress [Unknown]
  - Weight increased [Unknown]
  - Hot flush [Unknown]
  - Decreased appetite [Unknown]
  - Thrombosis [Unknown]
  - Arthralgia [Unknown]
  - Nausea [Unknown]
